FAERS Safety Report 15852996 (Version 1)
Quarter: 2019Q1

REPORT INFORMATION
  Report Type: Spontaneous
  Country: US (occurrence: US)
  Receive Date: 20190122
  Receipt Date: 20190122
  Transmission Date: 20190417
  Serious: No
  Sender: FDA-Public Use
  Company Number: US-PERRIGO-17US031485

PATIENT
  Age: 22 Year
  Sex: Male
  Weight: 71.66 kg

DRUGS (2)
  1. ASPIRIN                            /00002701/ [Concomitant]
     Active Substance: ASPIRIN
     Indication: ANTICOAGULANT THERAPY
     Dosage: 325 MG, EVERY 12 HOURS
     Route: 065
     Dates: start: 20171213
  2. IBUPROFEN. [Suspect]
     Active Substance: IBUPROFEN
     Indication: PAIN IN EXTREMITY
     Dosage: 800 MG, UNKNOWN
     Route: 048
     Dates: start: 20171215

REACTIONS (1)
  - Incorrect dose administered [Recovered/Resolved]

NARRATIVE: CASE EVENT DATE: 20171215
